FAERS Safety Report 19692848 (Version 3)
Quarter: 2021Q4

REPORT INFORMATION
  Report Type: Report from Study
  Country: US (occurrence: US)
  Receive Date: 20210812
  Receipt Date: 20211103
  Transmission Date: 20220303
  Serious: Yes (Other)
  Sender: FDA-Public Use
  Company Number: US-MALLINCKRODT PHARMACEUTICALS-T202102532

PATIENT
  Age: 42 Year
  Sex: Female
  Weight: 111 kg

DRUGS (2)
  1. CORTICOTROPIN [Suspect]
     Active Substance: CORTICOTROPIN
     Indication: Sarcoidosis
     Dosage: 80 UNITS TWICE WEEKLY
     Route: 065
     Dates: start: 20200520, end: 202105
  2. CORTICOTROPIN [Suspect]
     Active Substance: CORTICOTROPIN
     Dosage: UNK
     Route: 065
     Dates: start: 2021

REACTIONS (10)
  - Diabetes mellitus [Not Recovered/Not Resolved]
  - Intervertebral disc disorder [Unknown]
  - Nerve injury [Unknown]
  - Medical device implantation [Unknown]
  - Nail discolouration [Not Recovered/Not Resolved]
  - Psoriasis [Recovering/Resolving]
  - Stress [Unknown]
  - Aphonia [Recovering/Resolving]
  - Depressed mood [Not Recovered/Not Resolved]
  - Product dose omission issue [Unknown]

NARRATIVE: CASE EVENT DATE: 20210501
